FAERS Safety Report 10067488 (Version 1)
Quarter: 2014Q2

REPORT INFORMATION
  Report Type: Spontaneous
  Country: US (occurrence: None)
  Receive Date: 20140408
  Receipt Date: 20140408
  Transmission Date: 20141212
  Serious: Yes (Other)
  Sender: FDA-Public Use
  Company Number: None

PATIENT
  Age: 70 Year
  Sex: 0
  Weight: 66 kg

DRUGS (13)
  1. TICAGRELOR [Suspect]
  2. ROPINEROL [Concomitant]
  3. MONTELUKAST [Concomitant]
  4. LORATIDINE [Concomitant]
  5. TRIAMTERENE/HCTZ [Concomitant]
  6. DILTIAZEM ER [Concomitant]
  7. FERROUS SULFATE [Concomitant]
  8. ASPIRIN [Concomitant]
  9. GLYBURIDE [Concomitant]
  10. TICAGRELOR [Concomitant]
  11. BUDESONIDE/FORMOTEROL [Concomitant]
  12. ALBUTEROL NEBS [Concomitant]
  13. NITROGLYCERIN [Concomitant]

REACTIONS (1)
  - Blood creatinine increased [None]
